FAERS Safety Report 5639887-3 (Version None)
Quarter: 2008Q1

REPORT INFORMATION
  Report Type: 
  Country: None (occurrence: None)
  Receive Date: 20080226
  Receipt Date: 20080226
  Transmission Date: 20080703
  Serious: Yes (Hospitalization)
  Sender: FDA-Public Use
  Company Number: None

PATIENT
  Age: 28 Year
  Sex: Male
  Weight: 99.7913 kg

DRUGS (1)
  1. THYROID TAB [Suspect]

REACTIONS (1)
  - CONVULSION [None]
